FAERS Safety Report 5512784-X (Version None)
Quarter: 2007Q4

REPORT INFORMATION
  Report Type: 
  Country: None (occurrence: None)
  Receive Date: 20071112
  Receipt Date: 20071105
  Transmission Date: 20080405
  Serious: Yes (Hospitalization)
  Sender: FDA-Public Use
  Company Number: FR-AVENTIS-200713540FR

PATIENT
  Age: 78 Year
  Sex: Male

DRUGS (8)
  1. LASIX [Suspect]
     Route: 048
     Dates: end: 20070213
  2. LASIX [Suspect]
     Route: 048
     Dates: start: 20070214, end: 20070215
  3. LASIX [Suspect]
     Route: 048
     Dates: start: 20070216
  4. ODRIK [Suspect]
     Route: 048
     Dates: end: 20070101
  5. CARDENSIEL [Concomitant]
     Route: 048
  6. HEMIGOXINE [Concomitant]
     Route: 048
  7. PREVISCAN                          /00789001/ [Concomitant]
     Route: 048
  8. SERETIDE [Concomitant]
     Route: 055

REACTIONS (3)
  - BLOOD CREATININE INCREASED [None]
  - HYPERKALAEMIA [None]
  - RENAL FAILURE [None]
